FAERS Safety Report 18763574 (Version 1)
Quarter: 2021Q1

REPORT INFORMATION
  Report Type: Spontaneous
  Country: CA (occurrence: CA)
  Receive Date: 20210120
  Receipt Date: 20210120
  Transmission Date: 20210419
  Serious: Yes (Hospitalization)
  Sender: FDA-Public Use
  Company Number: CA-JNJFOC-20210123149

PATIENT
  Age: 19 Year
  Sex: Male

DRUGS (5)
  1. BENZTROPINE [BENZATROPINE] [Concomitant]
     Active Substance: BENZTROPINE
  2. INVEGA SUSTENNA [Suspect]
     Active Substance: PALIPERIDONE PALMITATE
  3. INVEGA SUSTENNA [Suspect]
     Active Substance: PALIPERIDONE PALMITATE
     Indication: SCHIZOPHRENIA
     Route: 030
  4. OLANZAPINE. [Concomitant]
     Active Substance: OLANZAPINE
  5. INVEGA SUSTENNA [Suspect]
     Active Substance: PALIPERIDONE PALMITATE

REACTIONS (7)
  - Oculogyric crisis [Unknown]
  - Trismus [Unknown]
  - Pallor [Unknown]
  - Eye movement disorder [Unknown]
  - Hyperhidrosis [Unknown]
  - Tremor [Unknown]
  - Extrapyramidal disorder [Unknown]
